FAERS Safety Report 8182715 (Version 2)
Quarter: 2012Q4

REPORT INFORMATION
  Report Type: 
  Country: PL (occurrence: PL)
  Receive Date: 20111017
  Receipt Date: 20121129
  Transmission Date: 20130627
  Serious: Yes (Other)
  Sender: FDA-Public Use
  Company Number: PL-RANBAXY-2011R1-48852

PATIENT
  Age: 28 Year
  Sex: Male

DRUGS (3)
  1. METFORMIN [Suspect]
     Indication: TYPE 2 DIABETES MELLITUS
     Dosage: 500mg/day
     Route: 065
  2. LEVOTHYROXINE SODIUM [Interacting]
     Indication: HYPOTHYROIDISM
     Dosage: 500ug daily
     Route: 065
  3. METFORMIN [Suspect]
     Indication: TYPE 2 DIABETES MELLITUS
     Dosage: 2.55 g/day
     Route: 065

REACTIONS (2)
  - Drug interaction [Recovered/Resolved]
  - Hyperthyroidism [Recovered/Resolved]
